FAERS Safety Report 7629112-6 (Version None)
Quarter: 2011Q3

REPORT INFORMATION
  Report Type: 
  Country: None (occurrence: None)
  Receive Date: 20110722
  Receipt Date: 20110722
  Transmission Date: 20111222
  Serious: Yes (Other)
  Sender: FDA-Public Use
  Company Number: None

PATIENT
  Age: 52 Year
  Sex: Female
  Weight: 79.378 kg

DRUGS (1)
  1. ALENDRONATE SODIUM [Suspect]
     Indication: OSTEOPENIA
     Dosage: 1 TABLET
     Route: 030
     Dates: start: 20110304, end: 20110329

REACTIONS (3)
  - DYSPEPSIA [None]
  - DYSPHAGIA [None]
  - CHEST PAIN [None]
